FAERS Safety Report 11492264 (Version 1)
Quarter: 2015Q3

REPORT INFORMATION
  Report Type: Spontaneous
  Country: US (occurrence: None)
  Receive Date: 20150910
  Receipt Date: 20150910
  Transmission Date: 20151125
  Serious: Yes (Disabling)
  Sender: FDA-Public Use
  Company Number: None

PATIENT
  Age: 64 Year
  Sex: Female
  Weight: 43.55 kg

DRUGS (11)
  1. ABILIFY [Suspect]
     Active Substance: ARIPIPRAZOLE
     Indication: ELECTROENCEPHALOGRAM ABNORMAL
     Dosage: 15 MG 1 PILL/DAY BEDTIME BY MOUTH
     Route: 048
     Dates: start: 2001
  2. VITAMIN E [Concomitant]
     Active Substance: .ALPHA.-TOCOPHEROL
  3. ABILIFY [Concomitant]
     Active Substance: ARIPIPRAZOLE
  4. VITAMIN D [Concomitant]
     Active Substance: CHOLECALCIFEROL
  5. ABILIFY [Suspect]
     Active Substance: ARIPIPRAZOLE
     Indication: MEMORY IMPAIRMENT
     Dosage: 15 MG 1 PILL/DAY BEDTIME BY MOUTH
     Route: 048
     Dates: start: 2001
  6. SEILINE IMPLANT [Concomitant]
  7. CALCIUM W/VIT. D [Concomitant]
  8. OMEGA 3 [Concomitant]
     Active Substance: OMEGA-3 FATTY ACIDS
  9. GINSENG [Concomitant]
     Active Substance: ASIAN GINSENG
  10. OMEPRAZOLE DR [Concomitant]
     Active Substance: OMEPRAZOLE
  11. GINSENG W/ROYAL JELLY [Concomitant]

REACTIONS (3)
  - Dyspepsia [None]
  - Pollakiuria [None]
  - Pain in extremity [None]

NARRATIVE: CASE EVENT DATE: 2001
